FAERS Safety Report 22093667 (Version 3)
Quarter: 2023Q2

REPORT INFORMATION
  Report Type: Report from Study
  Country: KR (occurrence: KR)
  Receive Date: 20230314
  Receipt Date: 20230405
  Transmission Date: 20230721
  Serious: Yes (Hospitalization)
  Sender: FDA-Public Use
  Company Number: KR-JNJFOC-20230316111

PATIENT
  Age: 75 Year
  Sex: Female
  Weight: 60 kg

DRUGS (31)
  1. DARATUMUMAB [Suspect]
     Active Substance: DARATUMUMAB
     Indication: Plasma cell myeloma
     Route: 058
     Dates: start: 20220627, end: 20230117
  2. TECLISTAMAB [Suspect]
     Active Substance: TECLISTAMAB
     Indication: Plasma cell myeloma
     Route: 058
     Dates: start: 20220628, end: 20220630
  3. TECLISTAMAB [Suspect]
     Active Substance: TECLISTAMAB
     Route: 058
     Dates: start: 20220704, end: 20230117
  4. AMOSARTAN PLUS [Concomitant]
     Indication: Hypertension
     Dosage: 5/100/12.5MG
     Route: 048
     Dates: start: 20220710, end: 20230306
  5. AMOSARTAN PLUS [Concomitant]
     Route: 048
     Dates: start: 20230320
  6. SUGAMET XR [Concomitant]
     Indication: Diabetes mellitus
     Dosage: 5/1000MG
     Route: 048
     Dates: start: 20220710, end: 20230306
  7. SUGAMET XR [Concomitant]
     Route: 048
     Dates: start: 20230320
  8. TANTUM [BENZYDAMINE HYDROCHLORIDE] [Concomitant]
     Indication: Mucositis management
     Route: 048
     Dates: start: 20220814
  9. SULFAMETHOXAZOLE\TRIMETHOPRIM [Concomitant]
     Active Substance: SULFAMETHOXAZOLE\TRIMETHOPRIM
     Indication: Productive cough
     Route: 048
     Dates: start: 20221017, end: 20230314
  10. SULFAMETHOXAZOLE\TRIMETHOPRIM [Concomitant]
     Active Substance: SULFAMETHOXAZOLE\TRIMETHOPRIM
     Indication: Pneumonitis
     Route: 048
     Dates: start: 20230315
  11. LEVOFLOXACIN [Concomitant]
     Active Substance: LEVOFLOXACIN
     Indication: Infection prophylaxis
     Route: 048
     Dates: start: 20230117, end: 20230306
  12. AMMONIUM CHLORIDE;CHLORPHENAMINE MALEATE;DIHYDROCODEINE BITARTRATE;MET [Concomitant]
     Indication: Productive cough
     Route: 048
     Dates: start: 20230117, end: 20230306
  13. ERDOSTEINE [Concomitant]
     Active Substance: ERDOSTEINE
     Indication: Productive cough
     Route: 048
     Dates: start: 20230117, end: 20230306
  14. VARIDASE [Concomitant]
     Indication: Productive cough
     Route: 048
     Dates: start: 20230117, end: 20230306
  15. VARIDASE [Concomitant]
     Route: 048
     Dates: start: 20230315
  16. METFORMIN HYDROCHLORIDE [Concomitant]
     Active Substance: METFORMIN HYDROCHLORIDE
     Indication: Diabetes mellitus
     Route: 047
     Dates: start: 20230306, end: 20230319
  17. BETAMETHASONE DIPROPIONATE\CLOTRIMAZOLE\GENTAMICIN SULFATE [Concomitant]
     Active Substance: BETAMETHASONE DIPROPIONATE\CLOTRIMAZOLE\GENTAMICIN SULFATE
     Indication: Diabetes mellitus
     Route: 048
     Dates: start: 20230306, end: 20230319
  18. BROMHEXINE HYDROCHLORIDE [Concomitant]
     Active Substance: BROMHEXINE HYDROCHLORIDE
     Indication: Productive cough
     Route: 048
     Dates: start: 20230307
  19. AMLODIPINE [Concomitant]
     Active Substance: AMLODIPINE BESYLATE
     Indication: Hypertension
     Route: 048
     Dates: start: 20230307, end: 20230307
  20. AMLODIPINE [Concomitant]
     Active Substance: AMLODIPINE BESYLATE
     Route: 048
     Dates: start: 20230316, end: 20230320
  21. COZAAR [Concomitant]
     Active Substance: LOSARTAN POTASSIUM
     Indication: Hypertension
     Route: 048
     Dates: start: 20230307, end: 20230307
  22. COZAAR [Concomitant]
     Active Substance: LOSARTAN POTASSIUM
     Route: 048
     Dates: start: 20230316, end: 20230320
  23. HYGROTON [Concomitant]
     Active Substance: CHLORTHALIDONE
     Indication: Hypertension
     Route: 048
     Dates: start: 20230307, end: 20230307
  24. HYGROTON [Concomitant]
     Active Substance: CHLORTHALIDONE
     Route: 048
     Dates: start: 20230316, end: 20230320
  25. NORPIN [NOREPINEPHRINE] [Concomitant]
     Indication: Prophylaxis
     Route: 042
     Dates: start: 20230307, end: 20230312
  26. TRAMADOL HYDROCHLORIDE [Concomitant]
     Active Substance: TRAMADOL HYDROCHLORIDE
     Indication: Pain prophylaxis
     Route: 042
     Dates: start: 20230308, end: 20230308
  27. LASIX [Concomitant]
     Active Substance: FUROSEMIDE
     Indication: Hypervolaemia
     Route: 042
     Dates: start: 20230308, end: 20230308
  28. FENTANYL [Concomitant]
     Active Substance: FENTANYL
     Indication: Bronchoscopy
     Route: 042
     Dates: start: 20230310, end: 20230310
  29. CODEINE [Concomitant]
     Active Substance: CODEINE
     Indication: Productive cough
     Route: 048
     Dates: start: 20230313
  30. LIV GAMMA SN [Concomitant]
     Indication: Hypogammaglobulinaemia
     Route: 042
     Dates: start: 20230316, end: 20230316
  31. CALCIUM CARBONATE [Concomitant]
     Active Substance: CALCIUM CARBONATE
     Indication: Prophylaxis
     Route: 047
     Dates: start: 20230316, end: 20230317

REACTIONS (1)
  - Pneumonitis [Recovered/Resolved]

NARRATIVE: CASE EVENT DATE: 20230306
